FAERS Safety Report 6969128-6 (Version None)
Quarter: 2010Q3

REPORT INFORMATION
  Report Type: 
  Country: None (occurrence: None)
  Receive Date: 20100907
  Receipt Date: 20100827
  Transmission Date: 20110219
  Serious: Yes (Hospitalization)
  Sender: FDA-Public Use
  Company Number: GXKR2010SG09813

PATIENT
  Age: 61 Year
  Sex: Female

DRUGS (4)
  1. CLOPIDOGREL BISULFATE [Suspect]
     Route: 065
  2. OMEPRAZOLE (NGX) [Suspect]
     Route: 065
  3. SIMVASTATIN (NGX) [Suspect]
     Route: 065
  4. METFORMIN HCL [Suspect]
     Route: 065

REACTIONS (6)
  - DRUG RASH WITH EOSINOPHILIA AND SYSTEMIC SYMPTOMS [None]
  - EOSINOPHILIA [None]
  - FACE OEDEMA [None]
  - HEPATITIS [None]
  - PYREXIA [None]
  - RASH MORBILLIFORM [None]
